FAERS Safety Report 6715231-5 (Version None)
Quarter: 2010Q2

REPORT INFORMATION
  Report Type: 
  Country: None (occurrence: None)
  Receive Date: 20100507
  Receipt Date: 20100427
  Transmission Date: 20101027
  Serious: Yes (Other)
  Sender: FDA-Public Use
  Company Number: BR-PFIZER INC-2010039953

PATIENT
  Age: 29 Year
  Sex: Female
  Weight: 50 kg

DRUGS (10)
  1. DEPO-PROVERA [Suspect]
     Indication: OFF LABEL USE
     Dosage: 150 MG, EVERY 45 DAYS
     Route: 030
     Dates: start: 20091228
  2. DEPO-PROVERA [Suspect]
     Indication: MENSTRUAL CYCLE MANAGEMENT
  3. SERTRALINE HCL [Suspect]
     Dosage: 50 MG
     Route: 048
     Dates: start: 20090101
  4. SERTRALINE HCL [Suspect]
     Dosage: 100 MG
     Route: 048
     Dates: start: 20100304
  5. SERTRALINE HCL [Suspect]
     Dosage: 50 MG
  6. PHENOBARBITAL [Suspect]
     Indication: EPILEPSY
     Dosage: 100 MG, 1X/DAY
     Dates: start: 20050101
  7. PHENOBARBITAL [Suspect]
     Dosage: 200 MG, 1X/DAY
     Dates: start: 20091101
  8. OMEPRAZOLE [Concomitant]
     Indication: GASTRITIS PROPHYLAXIS
     Dosage: UNK
  9. VITAMIN B COMPLEX CAP [Concomitant]
     Dosage: UNK
  10. FOLIC ACID [Concomitant]
     Dosage: UNK

REACTIONS (10)
  - ANAEMIA [None]
  - ASTHENIA [None]
  - EPILEPSY [None]
  - FEELING ABNORMAL [None]
  - HEADACHE [None]
  - MENORRHAGIA [None]
  - MENSTRUATION IRREGULAR [None]
  - SWELLING [None]
  - WEIGHT FLUCTUATION [None]
  - WHITE BLOOD CELL COUNT DECREASED [None]
